FAERS Safety Report 17866327 (Version 1)
Quarter: 2020Q2

REPORT INFORMATION
  Report Type: Spontaneous
  Country: US (occurrence: US)
  Receive Date: 20200605
  Receipt Date: 20200605
  Transmission Date: 20200714
  Serious: Yes (Hospitalization, Other)
  Sender: FDA-Public Use
  Company Number: US-AMGEN INC.-USASP2020045694

PATIENT
  Age: 31 Year
  Sex: Female
  Weight: 89 kg

DRUGS (1)
  1. AIMOVIG [Suspect]
     Active Substance: ERENUMAB-AOOE
     Indication: MIGRAINE
     Dosage: 70 MILLIGRAM, QMO
     Route: 058
     Dates: start: 20180723, end: 20181112

REACTIONS (6)
  - Bacterial vaginosis [Unknown]
  - Uterine spasm [Unknown]
  - Vaginal haemorrhage [Unknown]
  - Premature delivery [Unknown]
  - Constipation [Recovered/Resolved]
  - Maternal exposure during pregnancy [Recovered/Resolved]

NARRATIVE: CASE EVENT DATE: 201810
